FAERS Safety Report 6585380-3 (Version None)
Quarter: 2010Q1

REPORT INFORMATION
  Report Type: 
  Country: None (occurrence: None)
  Receive Date: 20100216
  Receipt Date: 20100216
  Transmission Date: 20100710
  Serious: Yes (Hospitalization)
  Sender: FDA-Public Use
  Company Number: None

PATIENT
  Sex: Female
  Weight: 65.5 kg

DRUGS (3)
  1. TEMOZOLOMIDE [Suspect]
     Dosage: 2000 MG
  2. THALIDOMIDE [Suspect]
     Dosage: 6000 MG
  3. ISOTRETINOIN (13-CIS-RETINOIC ACID, ACCUTANE) [Suspect]
     Dosage: 2100 MG

REACTIONS (5)
  - DECREASED APPETITE [None]
  - LUNG CONSOLIDATION [None]
  - NEUTROPENIA [None]
  - PNEUMONIA STREPTOCOCCAL [None]
  - URINE OUTPUT DECREASED [None]
